FAERS Safety Report 8128340-3 (Version None)
Quarter: 2012Q1

REPORT INFORMATION
  Report Type: 
  Country: None (occurrence: None)
  Receive Date: 20120210
  Receipt Date: 20120209
  Transmission Date: 20120608
  Serious: Yes (Hospitalization, Other)
  Sender: FDA-Public Use
  Company Number: US-PFIZER INC-2012036233

PATIENT
  Sex: Female

DRUGS (2)
  1. TRAMADOL HCL [Suspect]
     Dosage: UNK
  2. CHANTIX [Suspect]
     Dosage: UNK

REACTIONS (3)
  - SUICIDE ATTEMPT [None]
  - CONVULSION [None]
  - TOOTH LOSS [None]
